FAERS Safety Report 18335113 (Version 1)
Quarter: 2020Q4

REPORT INFORMATION
  Report Type: Spontaneous
  Country: US (occurrence: US)
  Receive Date: 20201001
  Receipt Date: 20201001
  Transmission Date: 20210113
  Serious: Yes (Other)
  Sender: FDA-Public Use
  Company Number: None

PATIENT
  Sex: Female
  Weight: 72 kg

DRUGS (6)
  1. RESTORIL [Concomitant]
     Active Substance: TEMAZEPAM
  2. VITAMIN D3 [Concomitant]
     Active Substance: CHOLECALCIFEROL
  3. CENTRUM SILVER FOR WOMEN OVER 50 [Concomitant]
  4. FIORICET [Concomitant]
     Active Substance: ACETAMINOPHEN\BUTALBITAL\CAFFEINE
  5. FERGON [Concomitant]
     Active Substance: FERROUS GLUCONATE
  6. PANTOPRAZOLE [Suspect]
     Active Substance: PANTOPRAZOLE
     Indication: GASTRIC DISORDER

REACTIONS (5)
  - Asthenia [None]
  - Mobility decreased [None]
  - Joint range of motion decreased [None]
  - Gait disturbance [None]
  - Arthralgia [None]
